FAERS Safety Report 5818395-0 (Version None)
Quarter: 2008Q3

REPORT INFORMATION
  Report Type: 
  Country: None (occurrence: None)
  Receive Date: 20080718
  Receipt Date: 20080703
  Transmission Date: 20090109
  Serious: Yes (Other)
  Sender: FDA-Public Use
  Company Number: JPI-P-004140

PATIENT
  Age: 49 Year
  Sex: Male

DRUGS (6)
  1. LUVOX [Suspect]
     Indication: DEPRESSION
     Dosage: 50 MG (25MG, 2 IN 1 D), ORAL, 100 MG (50 MG, 2 IN 1 D), ORAL
     Route: 048
     Dates: start: 20080610, end: 20080617
  2. LUVOX [Suspect]
     Indication: DEPRESSION
     Dosage: 50 MG (25MG, 2 IN 1 D), ORAL, 100 MG (50 MG, 2 IN 1 D), ORAL
     Route: 048
     Dates: start: 20080618, end: 20080620
  3. ZOLPIDEM TARTRATE [Concomitant]
  4. PRAVASTATIN [Concomitant]
  5. VALSARTAN [Concomitant]
  6. AMLODIPINE BESYLATE [Concomitant]

REACTIONS (6)
  - ACCOMMODATION DISORDER [None]
  - AMNESIA [None]
  - DIPLOPIA [None]
  - IRRITABILITY [None]
  - ROAD TRAFFIC ACCIDENT [None]
  - VISUAL IMPAIRMENT [None]
